FAERS Safety Report 5912505-2 (Version None)
Quarter: 2008Q4

REPORT INFORMATION
  Report Type: 
  Country: None (occurrence: None)
  Receive Date: 20081007
  Receipt Date: 20081007
  Transmission Date: 20090506
  Serious: Yes (Life-Threatening, Hospitalization)
  Sender: FDA-Public Use
  Company Number: None

PATIENT
  Age: 29 Year
  Sex: Male
  Weight: 86.1834 kg

DRUGS (1)
  1. CIMZIA [Suspect]
     Indication: CROHN'S DISEASE
     Dosage: EVERY TWO-WEEKS
     Dates: start: 20080619, end: 20080814

REACTIONS (17)
  - AMNESIA [None]
  - APHASIA [None]
  - BLINDNESS [None]
  - BLOOD POTASSIUM DECREASED [None]
  - DEHYDRATION [None]
  - HALLUCINATION [None]
  - HEADACHE [None]
  - INFLAMMATION [None]
  - MALAISE [None]
  - MOVEMENT DISORDER [None]
  - MUSCLE TWITCHING [None]
  - NERVOUS SYSTEM DISORDER [None]
  - PSYCHOMOTOR SKILLS IMPAIRED [None]
  - PYREXIA [None]
  - RESPIRATORY DISORDER [None]
  - THINKING ABNORMAL [None]
  - VOMITING [None]
